FAERS Safety Report 4653710-5 (Version None)
Quarter: 2005Q2

REPORT INFORMATION
  Report Type: 
  Country: None (occurrence: None)
  Receive Date: 20050404
  Receipt Date: 20041230
  Transmission Date: 20051028
  Serious: No
  Sender: FDA-Public Use
  Company Number: US_0411108412

PATIENT
  Age: 31 Year
  Sex: Female
  Weight: 132 kg

DRUGS (5)
  1. CYMBALTA [Suspect]
     Indication: DEPRESSION
     Dosage: 60 MG
     Dates: start: 20041001
  2. LEXAPRO [Concomitant]
  3. KLONOPIN [Concomitant]
  4. NEXIUM [Concomitant]
  5. RHINOCORT [Concomitant]

REACTIONS (4)
  - AGITATION [None]
  - ANXIETY [None]
  - HYPERSENSITIVITY [None]
  - PANIC ATTACK [None]
